FAERS Safety Report 12363391 (Version 1)
Quarter: 2016Q2

REPORT INFORMATION
  Report Type: Spontaneous
  Country: US (occurrence: US)
  Receive Date: 20160512
  Receipt Date: 20160512
  Transmission Date: 20160815
  Serious: No
  Sender: FDA-Public Use
  Company Number: US-UCBSA-2015009806

PATIENT
  Age: 53 Year
  Sex: Female

DRUGS (1)
  1. CIMZIA [Suspect]
     Active Substance: CERTOLIZUMAB PEGOL
     Indication: ARTHRITIS REACTIVE
     Dosage: 200 MG, EV 2 WEEKS(QOW)
     Dates: start: 20150223

REACTIONS (3)
  - Drug ineffective [Unknown]
  - Weight increased [Unknown]
  - Injection site reaction [Recovering/Resolving]

NARRATIVE: CASE EVENT DATE: 2015
